FAERS Safety Report 11467786 (Version 1)
Quarter: 2015Q3

REPORT INFORMATION
  Report Type: Spontaneous
  Country: CA (occurrence: None)
  Receive Date: 20150903
  Receipt Date: 20150903
  Transmission Date: 20151125
  Serious: Yes (Hospitalization, Other)
  Sender: FDA-Public Use
  Company Number: CA-2015VAL000543

PATIENT
  Age: 81 Year
  Sex: Female

DRUGS (2)
  1. METOPROLOL TARTRATE. [Suspect]
     Active Substance: METOPROLOL TARTRATE
     Indication: NEUROENDOCRINE TUMOUR
     Route: 048
  2. SANDOSTATIN LAR DEPOT [Suspect]
     Active Substance: OCTREOTIDE ACETATE
     Indication: NEUROENDOCRINE TUMOUR
     Dosage: QMO
     Route: 030
     Dates: start: 200810

REACTIONS (16)
  - Skin cancer [None]
  - Fall [None]
  - Asthenia [None]
  - Pneumonia [None]
  - Neck pain [None]
  - Heart rate increased [None]
  - Hypertension [None]
  - Urinary tract infection [None]
  - Candida infection [None]
  - Gastric disorder [None]
  - Second primary malignancy [None]
  - Arthritis [None]
  - Abdominal discomfort [None]
  - Blood sodium decreased [None]
  - Peripheral swelling [None]
  - Constipation [None]

NARRATIVE: CASE EVENT DATE: 20140305
